FAERS Safety Report 5049139-0 (Version None)
Quarter: 2006Q3

REPORT INFORMATION
  Report Type: 
  Country: None (occurrence: None)
  Receive Date: 20060712
  Receipt Date: 20060322
  Transmission Date: 20061208
  Serious: No
  Sender: FDA-Public Use
  Company Number: US-GLAXOSMITHKLINE-A0598602A

PATIENT
  Age: 58 Year
  Sex: Female

DRUGS (2)
  1. IMITREX [Suspect]
     Indication: MIGRAINE
     Dosage: 50MG AS REQUIRED
     Route: 048
  2. ZYRTEC [Concomitant]

REACTIONS (6)
  - ARTHRALGIA [None]
  - DYSPHAGIA [None]
  - DYSPHONIA [None]
  - HYPERAESTHESIA [None]
  - HYPERTENSION [None]
  - PHARYNGOLARYNGEAL PAIN [None]
